FAERS Safety Report 8866540 (Version 2)
Quarter: 2012Q4

REPORT INFORMATION
  Report Type: Report from Study
  Country: BR (occurrence: BR)
  Receive Date: 20121025
  Receipt Date: 20121115
  Transmission Date: 20130627
  Serious: Yes (Other)
  Sender: FDA-Public Use
  Company Number: BR-ABBOTT-12P-020-0997105-00

PATIENT
  Sex: Female
  Weight: 60 kg

DRUGS (3)
  1. HUMIRA PRE-FILLED SYRINGE [Suspect]
     Indication: RHEUMATOID ARTHRITIS
     Route: 058
     Dates: start: 20101008, end: 201203
  2. HUMIRA PRE-FILLED SYRINGE [Suspect]
     Route: 058
     Dates: start: 201205
  3. METHOTREXATE [Concomitant]
     Indication: RHEUMATOID ARTHRITIS
     Route: 048

REACTIONS (9)
  - Thyroid disorder [Unknown]
  - Urinary tract infection [Recovered/Resolved]
  - Arthralgia [Not Recovered/Not Resolved]
  - Spinal pain [Not Recovered/Not Resolved]
  - Hormone level abnormal [Unknown]
  - Arthralgia [Recovering/Resolving]
  - Thyroid neoplasm [Recovered/Resolved]
  - Dysphagia [Unknown]
  - Suffocation feeling [Unknown]
